FAERS Safety Report 18342450 (Version 1)
Quarter: 2020Q4

REPORT INFORMATION
  Report Type: Spontaneous
  Country: US (occurrence: US)
  Receive Date: 20201005
  Receipt Date: 20201005
  Transmission Date: 20210113
  Serious: Yes (Other)
  Sender: FDA-Public Use
  Company Number: US-ROCHE-2688460

PATIENT
  Age: 89 Year
  Sex: Male
  Weight: 61.29 kg

DRUGS (1)
  1. LUCENTIS [Suspect]
     Active Substance: RANIBIZUMAB
     Indication: MACULAR DEGENERATION
     Dosage: ONGOING:YES  (THE PATIENT WAS PREVIOUSLY ON ONCE A MONTH DOSING AND NOW CHANGED TO EVERY 8 WEEKS)
     Route: 050
     Dates: start: 20180101

REACTIONS (5)
  - Weight decreased [Unknown]
  - Pain [Unknown]
  - Eye disorder [Unknown]
  - Body height decreased [Unknown]
  - Haemorrhage [Unknown]

NARRATIVE: CASE EVENT DATE: 201807
